FAERS Safety Report 9379490 (Version 1)
Quarter: 2013Q3

REPORT INFORMATION
  Report Type: Spontaneous
  Country: US (occurrence: US)
  Receive Date: 20130702
  Receipt Date: 20130702
  Transmission Date: 20140515
  Serious: No
  Sender: FDA-Public Use
  Company Number: US-BAYER-2013-078675

PATIENT
  Age: 60 Year
  Sex: Female

DRUGS (6)
  1. BETASERON [Suspect]
     Indication: MULTIPLE SCLEROSIS
     Dosage: UNK
     Dates: end: 20130618
  2. ADVIL [Concomitant]
  3. DIMETHYL FUMARATE [Concomitant]
  4. VALACICLOVIR [Concomitant]
  5. VITAMIN D3 [Concomitant]
  6. CALCIUM +VIT D [Concomitant]

REACTIONS (1)
  - Herpes virus infection [Not Recovered/Not Resolved]
